FAERS Safety Report 13880424 (Version 1)
Quarter: 2017Q3

REPORT INFORMATION
  Report Type: Spontaneous
  Country: US (occurrence: None)
  Receive Date: 20170817
  Receipt Date: 20170817
  Transmission Date: 20171127
  Serious: Yes (Hospitalization)
  Sender: FDA-Public Use
  Company Number: None

PATIENT
  Age: 29 Year
  Sex: Female
  Weight: 108.86 kg

DRUGS (2)
  1. NEXPLANON [Suspect]
     Active Substance: ETONOGESTREL
     Dates: start: 20170301
  2. TOPAX [Concomitant]

REACTIONS (7)
  - Fatigue [None]
  - Migraine [None]
  - Pain [None]
  - Depression [None]
  - Device related infection [None]
  - Acne [None]
  - Weight increased [None]

NARRATIVE: CASE EVENT DATE: 20170617
